FAERS Safety Report 24835012 (Version 3)
Quarter: 2025Q1

REPORT INFORMATION
  Report Type: Report from Study
  Country: BR (occurrence: BR)
  Receive Date: 20250113
  Receipt Date: 20250125
  Transmission Date: 20250409
  Serious: No
  Sender: CELLTRION
  Company Number: BR-CELLTRION INC.-2025BR000400

PATIENT

DRUGS (5)
  1. INFLIXIMAB-DYYB [Suspect]
     Active Substance: INFLIXIMAB-DYYB
     Indication: Ankylosing spondylitis
     Route: 042
  2. INFLIXIMAB-DYYB [Suspect]
     Active Substance: INFLIXIMAB-DYYB
     Indication: Vasculitis
     Route: 042
     Dates: start: 20250107
  3. INFLIXIMAB [Suspect]
     Active Substance: INFLIXIMAB
     Indication: Ankylosing spondylitis
  4. ATENOLOL [Concomitant]
     Active Substance: ATENOLOL
     Indication: Product used for unknown indication
     Route: 048
  5. FLUOXETINE [Concomitant]
     Active Substance: FLUOXETINE HYDROCHLORIDE
     Indication: Product used for unknown indication
     Route: 048

REACTIONS (4)
  - Headache [Recovering/Resolving]
  - Drug ineffective [Unknown]
  - Intentional product use issue [Unknown]
  - Intentional product use issue [Unknown]
